FAERS Safety Report 6593774-5 (Version None)
Quarter: 2010Q1

REPORT INFORMATION
  Report Type: 
  Country: None (occurrence: None)
  Receive Date: 20100222
  Receipt Date: 20100218
  Transmission Date: 20100710
  Serious: Yes (Other)
  Sender: FDA-Public Use
  Company Number: US-ROXANE LABORATORIES, INC.-2010-RO-00183RO

PATIENT
  Age: 69 Year
  Sex: Female

DRUGS (1)
  1. CODEINE SUL TAB [Suspect]

REACTIONS (4)
  - MALAISE [None]
  - NAUSEA [None]
  - URTICARIA [None]
  - VOMITING [None]
